FAERS Safety Report 6366647-0 (Version None)
Quarter: 2009Q3

REPORT INFORMATION
  Report Type: 
  Country: None (occurrence: None)
  Receive Date: 20090921
  Receipt Date: 20090910
  Transmission Date: 20100115
  Serious: Yes (Other)
  Sender: FDA-Public Use
  Company Number: PHHY2009JP38464

PATIENT
  Age: 39 Year
  Sex: Male

DRUGS (4)
  1. TEGRETOL [Suspect]
     Indication: EPILEPSY
     Dosage: 750 MG/DAY
     Route: 048
  2. VALPROATE SODIUM [Concomitant]
  3. MYSTAN AZWELL [Concomitant]
     Dosage: 7.5 MG, UNK
     Route: 048
  4. HYDANTOL [Concomitant]
     Dosage: 150 MG, UNK
     Route: 048

REACTIONS (2)
  - CONVULSION [None]
  - PENILE SIZE REDUCED [None]
